FAERS Safety Report 21672314 (Version 1)
Quarter: 2022Q4

REPORT INFORMATION
  Report Type: Other
  Country: JP (occurrence: JP)
  Receive Date: 20221202
  Receipt Date: 20221202
  Transmission Date: 20230112
  Serious: Yes (Death, Hospitalization)
  Sender: FDA-Public Use
  Company Number: JP-CHUGAI-2022047806

PATIENT
  Age: 7 Decade
  Sex: Female

DRUGS (2)
  1. CELLCEPT [Suspect]
     Active Substance: MYCOPHENOLATE MOFETIL
     Indication: Acquired epidermolysis bullosa
     Route: 048
  2. PREDNISOLONE [Concomitant]
     Active Substance: PREDNISOLONE
     Indication: Acquired epidermolysis bullosa
     Route: 065

REACTIONS (4)
  - Disseminated mycobacterium avium complex infection [Fatal]
  - Immunodeficiency [Unknown]
  - Lymphangiectasia intestinal [Unknown]
  - Off label use [Unknown]
